FAERS Safety Report 5526708-2 (Version None)
Quarter: 2007Q4

REPORT INFORMATION
  Report Type: 
  Country: None (occurrence: None)
  Receive Date: 20071123
  Receipt Date: 20070209
  Transmission Date: 20080405
  Serious: Yes (Hospitalization)
  Sender: FDA-Public Use
  Company Number: 2007MP000067

PATIENT
  Sex: Male

DRUGS (1)
  1. GLIADEL [Suspect]
     Dosage: ICER
     Dates: start: 20060101, end: 20060101

REACTIONS (1)
  - POSTOPERATIVE WOUND INFECTION [None]
